FAERS Safety Report 7608631-2 (Version None)
Quarter: 2011Q3

REPORT INFORMATION
  Report Type: 
  Country: None (occurrence: None)
  Receive Date: 20110713
  Receipt Date: 20110713
  Transmission Date: 20111222
  Serious: Yes (Other)
  Sender: FDA-Public Use
  Company Number: None

PATIENT
  Age: 50 Year
  Sex: Female
  Weight: 104.3273 kg

DRUGS (1)
  1. CYMBALTA [Suspect]
     Indication: DISTURBANCE IN ATTENTION
     Dosage: 60MG ONCE A DAY PO
     Route: 048
     Dates: start: 20090423, end: 20110629

REACTIONS (5)
  - DRUG DEPENDENCE [None]
  - NO THERAPEUTIC RESPONSE [None]
  - WITHDRAWAL SYNDROME [None]
  - PAIN [None]
  - MENTAL DISORDER [None]
